FAERS Safety Report 13436588 (Version 1)
Quarter: 2017Q2

REPORT INFORMATION
  Report Type: Spontaneous
  Country: US (occurrence: US)
  Receive Date: 20170413
  Receipt Date: 20170413
  Transmission Date: 20170830
  Serious: No
  Sender: FDA-Public Use
  Company Number: US-ASTELLAS-2017US003082

PATIENT
  Sex: Female

DRUGS (2)
  1. ASTAGRAF XL [Suspect]
     Active Substance: TACROLIMUS
     Indication: HEART TRANSPLANT
     Route: 048
     Dates: start: 20151028
  2. ASTAGRAF XL [Suspect]
     Active Substance: TACROLIMUS
     Route: 048
     Dates: start: 20160511, end: 20161214

REACTIONS (2)
  - Off label use [Unknown]
  - Immunosuppressant drug level [Unknown]
